FAERS Safety Report 25091966 (Version 2)
Quarter: 2025Q3

REPORT INFORMATION
  Report Type: Spontaneous
  Country: EU (occurrence: EU)
  Receive Date: 20250318
  Receipt Date: 20250801
  Transmission Date: 20251021
  Serious: Yes (Other)
  Sender: JOHNSON AND JOHNSON
  Company Number: EU-JNJFOC-20250344367

PATIENT
  Sex: Male

DRUGS (8)
  1. HALOPERIDOL [Suspect]
     Active Substance: HALOPERIDOL
     Indication: Product used for unknown indication
  2. RISPERDAL [Suspect]
     Active Substance: RISPERIDONE
     Indication: Product used for unknown indication
  3. RISPERDAL [Suspect]
     Active Substance: RISPERIDONE
  4. RISPERDAL [Suspect]
     Active Substance: RISPERIDONE
  5. RISPERDAL [Suspect]
     Active Substance: RISPERIDONE
  6. RISPERDAL [Suspect]
     Active Substance: RISPERIDONE
  7. RISPERDAL [Suspect]
     Active Substance: RISPERIDONE
  8. DIAZEPAM [Suspect]
     Active Substance: DIAZEPAM
     Indication: Product used for unknown indication
     Route: 065

REACTIONS (6)
  - Circulatory collapse [Unknown]
  - Seizure [Recovered/Resolved]
  - Altered state of consciousness [Recovered/Resolved]
  - Personality disorder [Unknown]
  - Product prescribing issue [Unknown]
  - Involuntary medical treatment [Unknown]

NARRATIVE: CASE EVENT DATE: 20201201
